FAERS Safety Report 6779211-6 (Version None)
Quarter: 2010Q2

REPORT INFORMATION
  Report Type: 
  Country: None (occurrence: None)
  Receive Date: 20100618
  Receipt Date: 20100615
  Transmission Date: 20101027
  Serious: Yes (Hospitalization)
  Sender: FDA-Public Use
  Company Number: FR-SANOFI-AVENTIS-2010SA034550

PATIENT
  Age: 45 Year
  Sex: Male

DRUGS (8)
  1. RIFADIN [Suspect]
     Route: 042
     Dates: start: 20100403, end: 20100408
  2. IMIPENEM AND CILASTATIN SODIUM [Suspect]
     Route: 042
     Dates: start: 20100317, end: 20100328
  3. IMIPENEM AND CILASTATIN SODIUM [Suspect]
     Dates: start: 20100403, end: 20100416
  4. VANCOCIN HYDROCHLORIDE [Suspect]
     Route: 042
     Dates: start: 20100317, end: 20100328
  5. VANCOCIN HYDROCHLORIDE [Suspect]
     Dates: start: 20100403, end: 20100416
  6. LOVENOX [Concomitant]
     Indication: DRUG USE FOR UNKNOWN INDICATION
     Route: 058
  7. IMOVANE [Concomitant]
     Indication: DRUG USE FOR UNKNOWN INDICATION
     Dosage: DOSE:1 UNIT(S)
     Route: 048
  8. PRIMPERAN TAB [Concomitant]
     Indication: DRUG USE FOR UNKNOWN INDICATION
     Route: 048

REACTIONS (3)
  - CHOLESTASIS [None]
  - CYTOLYTIC HEPATITIS [None]
  - NEPHRITIS ALLERGIC [None]
